FAERS Safety Report 9769207 (Version 3)
Quarter: 2014Q2

REPORT INFORMATION
  Report Type: Spontaneous
  Country: US (occurrence: US)
  Receive Date: 20131218
  Receipt Date: 20140422
  Transmission Date: 20141212
  Serious: Yes (Hospitalization)
  Sender: FDA-Public Use
  Company Number: US-BAYER-2013-154552

PATIENT
  Age: 28 Year
  Sex: Female
  Weight: 90.7 kg

DRUGS (9)
  1. MIRENA [Suspect]
     Indication: CONTRACEPTION
     Dosage: 20 MCG/24HR, CONT
     Route: 015
     Dates: start: 20070320, end: 20130313
  2. TOPAMAX [Concomitant]
     Dosage: 50 MG, UNK
     Dates: start: 20110922
  3. MAXALT [Concomitant]
     Dosage: 10 MG, UNK
     Dates: start: 20110922
  4. SPRINTEC [Concomitant]
     Dosage: UNK
     Dates: start: 201303, end: 201309
  5. ORTHO EVRA [Concomitant]
  6. NUVARING [Concomitant]
  7. MOMETASONE [Concomitant]
  8. VANOS [Concomitant]
  9. METHYLPREDNISOLON [Concomitant]

REACTIONS (5)
  - Uterine perforation [None]
  - Injury [None]
  - Device misuse [None]
  - Pain [None]
  - Emotional distress [None]
